FAERS Safety Report 8292822-4 (Version None)
Quarter: 2012Q2

REPORT INFORMATION
  Report Type: 
  Country: None (occurrence: None)
  Receive Date: 20120417
  Receipt Date: 20120411
  Transmission Date: 20120825
  Serious: Yes (Hospitalization)
  Sender: FDA-Public Use
  Company Number: BR-ALLERGAN-1203878US

PATIENT
  Age: 39 Year
  Sex: Female

DRUGS (4)
  1. BOTULINUM TOXIN TYPE A [Suspect]
     Indication: SKIN WRINKLING
     Dosage: 34 UNITS, SINGLE
     Route: 030
     Dates: start: 20120211, end: 20120211
  2. SURGIDERM [Concomitant]
     Indication: PRODUCT USED FOR UNKNOWN INDICATION
  3. JUVEDERM [Concomitant]
     Indication: SKIN WRINKLING
  4. FILORGA [Concomitant]
     Indication: PRODUCT USED FOR UNKNOWN INDICATION

REACTIONS (9)
  - EYELID PTOSIS [None]
  - STRABISMUS [None]
  - ASTHENOPIA [None]
  - EYE PAIN [None]
  - EYE PRURITUS [None]
  - PHOTOPHOBIA [None]
  - WEIGHT DECREASED [None]
  - CONFUSIONAL STATE [None]
  - HYPONATRAEMIA [None]
